FAERS Safety Report 11177354 (Version 3)
Quarter: 2015Q3

REPORT INFORMATION
  Report Type: Spontaneous
  Country: US (occurrence: US)
  Receive Date: 20150610
  Receipt Date: 20150804
  Transmission Date: 20151125
  Serious: Yes (Death, Other)
  Sender: FDA-Public Use
  Company Number: US-ASTRAZENECA-2014SE67799

PATIENT
  Age: 24777 Day
  Sex: Male
  Weight: 83.4 kg

DRUGS (24)
  1. SINEMET [Concomitant]
     Active Substance: CARBIDOPA\LEVODOPA
     Dosage: 10-100 MG TABLETS, TWICE A DAY
     Dates: start: 20120308
  2. AVANDARYL [Concomitant]
     Active Substance: GLIMEPIRIDE\ROSIGLITAZONE MALEATE
     Dosage: 4-2 MG TABLETS, ONCE A DAY
     Dates: start: 20120308
  3. ZETIA [Concomitant]
     Active Substance: EZETIMIBE
     Dates: start: 20110729
  4. BYETTA [Suspect]
     Active Substance: EXENATIDE
     Dosage: 10 MCG/0.04
     Route: 065
     Dates: start: 20071201
  5. AVAPRO [Concomitant]
     Active Substance: IRBESARTAN
     Dates: start: 20090127
  6. BYETTA [Suspect]
     Active Substance: EXENATIDE
     Dosage: 10 MCG/0.04 ML, ONCE A DAY
     Route: 065
     Dates: start: 20090127
  7. BYETTA [Suspect]
     Active Substance: EXENATIDE
     Dosage: 10 MCG/0.04 ML, ONCE A DAY
     Route: 065
     Dates: start: 20120830
  8. BYETTA [Suspect]
     Active Substance: EXENATIDE
     Route: 065
     Dates: start: 20080417, end: 20120726
  9. BYETTA [Suspect]
     Active Substance: EXENATIDE
     Dosage: 10 MCG/0.04 ML, ONCE A DAY
     Route: 065
     Dates: start: 20100716
  10. FENOFIBRATE/ TRICOR [Concomitant]
     Dates: start: 20120308
  11. METFORMIN HYDROCHLORIDE. [Concomitant]
     Active Substance: METFORMIN HYDROCHLORIDE
     Dates: start: 20120308
  12. NITROSTAT [Concomitant]
     Active Substance: NITROGLYCERIN
     Route: 060
     Dates: start: 20120308
  13. FOLIC ACID. [Concomitant]
     Active Substance: FOLIC ACID
     Dates: start: 20110110
  14. PRIMIDONE. [Concomitant]
     Active Substance: PRIMIDONE
     Dates: start: 20090127
  15. GLIMEPIRIDE. [Concomitant]
     Active Substance: GLIMEPIRIDE
     Dates: start: 20090127
  16. ASPIRIN. [Concomitant]
     Active Substance: ASPIRIN
     Dates: start: 20120308
  17. MORPHINE [Concomitant]
     Active Substance: MORPHINE
     Dates: start: 20120830
  18. COZAAR [Concomitant]
     Active Substance: LOSARTAN POTASSIUM
     Dates: start: 20120308
  19. CRESTOR [Concomitant]
     Active Substance: ROSUVASTATIN CALCIUM
     Dates: start: 20120308
  20. CLONAZEPAM. [Concomitant]
     Active Substance: CLONAZEPAM
     Dates: start: 20110110
  21. LOMOTIL [Concomitant]
     Active Substance: ATROPINE SULFATE\DIPHENOXYLATE HYDROCHLORIDE
     Dates: start: 20120830
  22. CLOTRIMAZOLE. [Concomitant]
     Active Substance: CLOTRIMAZOLE
  23. LANTUS [Concomitant]
     Active Substance: INSULIN GLARGINE
     Dosage: 100 UNITS/ ML, ONCE A DAY
     Dates: start: 20120308
  24. NIACIN. [Concomitant]
     Active Substance: NIACIN
     Dates: start: 20120308

REACTIONS (4)
  - Pancreatic carcinoma metastatic [Fatal]
  - Bile duct adenocarcinoma [Unknown]
  - Metastases to liver [Unknown]
  - Jaundice cholestatic [Unknown]

NARRATIVE: CASE EVENT DATE: 20120817
